FAERS Safety Report 24572586 (Version 1)
Quarter: 2024Q4

REPORT INFORMATION
  Report Type: Spontaneous
  Country: US (occurrence: US)
  Receive Date: 20241101
  Receipt Date: 20241101
  Transmission Date: 20250115
  Serious: No
  Sender: MERCK
  Company Number: US-009507513-2410USA005826

PATIENT

DRUGS (8)
  1. KEYTRUDA [Suspect]
     Active Substance: PEMBROLIZUMAB
     Indication: Peripheral T-cell lymphoma unspecified stage III
     Dosage: UNK
  2. DEXAMETHASONE [Concomitant]
     Active Substance: DEXAMETHASONE
     Indication: Peripheral T-cell lymphoma unspecified stage III
     Dosage: UNK
  3. METHOTREXATE [Concomitant]
     Active Substance: METHOTREXATE
     Indication: Peripheral T-cell lymphoma unspecified stage III
     Dosage: UNK
  4. IFOSFAMIDE [Concomitant]
     Active Substance: IFOSFAMIDE
     Indication: Peripheral T-cell lymphoma unspecified stage III
     Dosage: UNK
  5. ASPARAGINASE [Concomitant]
     Active Substance: ASPARAGINASE
     Indication: Peripheral T-cell lymphoma unspecified stage III
     Dosage: UNK
  6. ETOPOSIDE [Concomitant]
     Active Substance: ETOPOSIDE
     Indication: Peripheral T-cell lymphoma unspecified stage III
     Dosage: UNK
  7. BORTEZOMIB [Concomitant]
     Active Substance: BORTEZOMIB
     Indication: Peripheral T-cell lymphoma unspecified stage III
     Dosage: UNK
  8. FLUDARABINE [Concomitant]
     Active Substance: FLUDARABINE PHOSPHATE
     Indication: Peripheral T-cell lymphoma unspecified stage III
     Dosage: UNK

REACTIONS (1)
  - Product use in unapproved indication [Unknown]
